FAERS Safety Report 4341276-9 (Version None)
Quarter: 2004Q1

REPORT INFORMATION
  Report Type: 
  Country: None (occurrence: None)
  Receive Date: 20040314
  Receipt Date: 20040113
  Transmission Date: 20041129
  Serious: Yes (Hospitalization)
  Sender: FDA-Public Use
  Company Number: SUSI-2004-00018

PATIENT
  Age: 41 Year
  Sex: Female

DRUGS (4)
  1. ADDERALL [Suspect]
     Indication: ATTENTION DEFICIT/HYPERACTIVITY DISORDER
     Dosage: SEE IMAGE
     Dates: start: 20030201, end: 20040111
  2. CLONAZEPAM [Concomitant]
  3. CLOMIPRAMINE HCL [Concomitant]
  4. TOPIRAMATE (TOOPIRAMATE) [Concomitant]

REACTIONS (1)
  - CARDIOMYOPATHY [None]
